FAERS Safety Report 9233643 (Version 1)
Quarter: 2013Q2

REPORT INFORMATION
  Report Type: Spontaneous
  Country: US (occurrence: US)
  Receive Date: 20130416
  Receipt Date: 20130416
  Transmission Date: 20140414
  Serious: No
  Sender: FDA-Public Use
  Company Number: US-BANPHARM-20130853

PATIENT
  Age: 59 Year
  Sex: Male
  Weight: 70.29 kg

DRUGS (1)
  1. NAPROXEN SODIUM 220MG [Suspect]
     Indication: ARTHRALGIA
     Dosage: 2 DF, QD,
     Route: 048
     Dates: start: 20130125

REACTIONS (3)
  - Somnolence [Not Recovered/Not Resolved]
  - International normalised ratio increased [Not Recovered/Not Resolved]
  - Incorrect drug administration duration [Unknown]
